FAERS Safety Report 25931748 (Version 3)
Quarter: 2025Q4

REPORT INFORMATION
  Report Type: Spontaneous
  Country: ID (occurrence: ID)
  Receive Date: 20251016
  Receipt Date: 20251106
  Transmission Date: 20260118
  Serious: No
  Sender: SANOFI AVENTIS
  Company Number: ID-SA-2025SA307154

PATIENT
  Age: 54 Year
  Sex: Female

DRUGS (5)
  1. THYROGEN [Suspect]
     Active Substance: THYROTROPIN ALFA
     Indication: Radioactive iodine therapy
     Dosage: 0.9 MG, QW
     Route: 030
     Dates: start: 20251011, end: 20251011
  2. THYROGEN [Suspect]
     Active Substance: THYROTROPIN ALFA
     Dosage: 0.9 MG, 1X
     Route: 030
     Dates: start: 20251012, end: 20251012
  3. EUTHYROX [Concomitant]
     Active Substance: LEVOTHYROXINE SODIUM
     Dosage: UNK
  4. CAL 95 [Concomitant]
     Dosage: UNK
  5. CANDERIN [Concomitant]
     Dosage: UNK

REACTIONS (3)
  - Blood thyroid stimulating hormone increased [Recovered/Resolved]
  - Nausea [Recovered/Resolved]
  - Vomiting [Recovered/Resolved]

NARRATIVE: CASE EVENT DATE: 20251011
